FAERS Safety Report 24707756 (Version 2)
Quarter: 2024Q4

REPORT INFORMATION
  Report Type: Spontaneous
  Country: US (occurrence: US)
  Receive Date: 20241206
  Receipt Date: 20241218
  Transmission Date: 20250115
  Serious: Yes (Hospitalization)
  Sender: AVADEL CNS PHARMACEUTICALS, LLC
  Company Number: US-AVADEL CNS PHARMACEUTICALS, LLC-2024AVA02316

PATIENT
  Age: 47 Year
  Sex: Female

DRUGS (1)
  1. LUMRYZ [Suspect]
     Active Substance: SODIUM OXYBATE
     Indication: Narcolepsy
     Dosage: 4.5 G, ONCE NIGHTLY
     Dates: start: 20241123, end: 20241124

REACTIONS (10)
  - Dyspnoea [Recovered/Resolved]
  - Swollen tongue [Recovered/Resolved]
  - Dizziness [Recovered/Resolved]
  - Nausea [Recovered/Resolved]
  - Hypoaesthesia oral [Not Recovered/Not Resolved]
  - Paraesthesia oral [Not Recovered/Not Resolved]
  - Feeling cold [Unknown]
  - Panic attack [Unknown]
  - Hyperhidrosis [Unknown]
  - Incorrect dose administered [Recovered/Resolved]

NARRATIVE: CASE EVENT DATE: 20241123
